FAERS Safety Report 26176824 (Version 1)
Quarter: 2025Q4

REPORT INFORMATION
  Report Type: Spontaneous
  Country: US (occurrence: US)
  Receive Date: 20251218
  Receipt Date: 20251218
  Transmission Date: 20260118
  Serious: Yes (Other)
  Sender: DR REDDYS
  Company Number: US-DRL-USA-USA/2025/12/019007

PATIENT
  Age: 64 Year
  Sex: Female

DRUGS (4)
  1. VALGANCICLOVIR [Suspect]
     Active Substance: VALGANCICLOVIR
     Indication: Antiviral prophylaxis
  2. SIROLIMUS [Suspect]
     Active Substance: SIROLIMUS
     Indication: Immunosuppressant drug therapy
  3. FOSCARNET [Concomitant]
     Active Substance: FOSCARNET
     Indication: Antiviral prophylaxis
  4. MARIBAVIR [Concomitant]
     Active Substance: MARIBAVIR
     Indication: Antiviral prophylaxis

REACTIONS (2)
  - Focal segmental glomerulosclerosis [Recovering/Resolving]
  - Drug ineffective [Unknown]
